FAERS Safety Report 6407877-9 (Version None)
Quarter: 2009Q4

REPORT INFORMATION
  Report Type: 
  Country: None (occurrence: None)
  Receive Date: 20091015
  Receipt Date: 20091006
  Transmission Date: 20100525
  Serious: Yes (Other)
  Sender: FDA-Public Use
  Company Number: 2009US000582

PATIENT
  Sex: Male
  Weight: 0.5 kg

DRUGS (6)
  1. PROGRAF [Suspect]
     Indication: DRUG EXPOSURE DURING PREGNANCY
     Dosage: 9 MG, UID/QD, ORAL
     Route: 064
  2. AZATHIOPRINE [Concomitant]
     Route: 064
  3. PREDNISONE TAB [Concomitant]
     Route: 064
  4. HYDROCHLOROTHIAZIDE [Concomitant]
     Route: 064
  5. IRON (IRON) [Concomitant]
     Route: 064
  6. COLACE (DOCUSATE SODIUM) [Concomitant]
     Route: 064

REACTIONS (5)
  - BRONCHOPULMONARY DYSPLASIA [None]
  - CAESAREAN SECTION [None]
  - MATERNAL DRUGS AFFECTING FOETUS [None]
  - PATENT DUCTUS ARTERIOSUS REPAIR [None]
  - PREMATURE BABY [None]
